FAERS Safety Report 7257999-8 (Version None)
Quarter: 2011Q1

REPORT INFORMATION
  Report Type: 
  Country: None (occurrence: None)
  Receive Date: 20110129
  Receipt Date: 20100730
  Transmission Date: 20110831
  Serious: No
  Sender: FDA-Public Use
  Company Number: US-ABBOTT-10P-163-0651476-00

PATIENT
  Sex: Female

DRUGS (17)
  1. PREVACID [Concomitant]
     Indication: GASTROOESOPHAGEAL REFLUX DISEASE
  2. TRAMADOL HCL [Concomitant]
     Indication: PAIN
  3. VITAMIN A [Concomitant]
     Indication: PRODUCT USED FOR UNKNOWN INDICATION
     Route: 048
  4. LIPITOR [Concomitant]
     Indication: PRODUCT USED FOR UNKNOWN INDICATION
  5. HUMIRA [Suspect]
     Indication: RHEUMATOID ARTHRITIS
     Route: 058
  6. PAXIL [Concomitant]
     Indication: HYPERTENSION
  7. LIPITOR [Concomitant]
     Dates: start: 20100805
  8. VITAMIN E [Concomitant]
     Indication: PRODUCT USED FOR UNKNOWN INDICATION
     Route: 048
  9. POTASSIUM [Concomitant]
     Indication: PRODUCT USED FOR UNKNOWN INDICATION
     Route: 048
  10. PAXIL [Concomitant]
     Indication: ANXIETY
     Route: 048
     Dates: start: 20100805
  11. FOLIC [Concomitant]
     Indication: ARTHRITIS
  12. XANAX [Concomitant]
     Indication: ANXIETY
     Route: 048
  13. XANAX [Concomitant]
     Indication: SLEEP DISORDER
  14. VITAMIN D [Concomitant]
     Indication: PRODUCT USED FOR UNKNOWN INDICATION
     Route: 048
  15. PAXIL [Concomitant]
     Indication: SLEEP DISORDER
  16. FLEXERIL [Concomitant]
     Indication: PAIN
  17. METHOTREXATE [Concomitant]
     Indication: PRODUCT USED FOR UNKNOWN INDICATION
     Dosage: 2.5

REACTIONS (7)
  - HYPERTENSION [None]
  - NASOPHARYNGITIS [None]
  - COUGH [None]
  - SNEEZING [None]
  - PYREXIA [None]
  - FEELING ABNORMAL [None]
  - HEART RATE INCREASED [None]
